FAERS Safety Report 6942027-1 (Version None)
Quarter: 2010Q3

REPORT INFORMATION
  Report Type: 
  Country: None (occurrence: None)
  Receive Date: 20100826
  Receipt Date: 20100823
  Transmission Date: 20110219
  Serious: Yes (Death, Hospitalization, Other)
  Sender: FDA-Public Use
  Company Number: US-ASTRAZENECA-2006UW07951

PATIENT
  Age: 16410 Day
  Sex: Male
  Weight: 79.4 kg

DRUGS (29)
  1. SEROQUEL [Suspect]
     Indication: INSOMNIA
     Dosage: 50 TO 300 MG
     Route: 048
     Dates: start: 20000101, end: 20050101
  2. SEROQUEL [Suspect]
     Dosage: 25 TO 300 MG
     Route: 048
  3. SEROQUEL [Suspect]
     Dosage: 50-300 MG
     Route: 048
     Dates: start: 20000101, end: 20010101
  4. SEROQUEL [Suspect]
     Route: 048
     Dates: start: 20010101
  5. WELLBUTRIN XL [Concomitant]
  6. ACETAMINOPHEN [Concomitant]
  7. ARICEPT [Concomitant]
  8. KLONOPIN [Concomitant]
  9. AMARYL [Concomitant]
  10. GLUCOTROL [Concomitant]
  11. PAXIL [Concomitant]
  12. ALTITRAZODONE [Concomitant]
  13. OXYCONTIN [Concomitant]
  14. LOPRESSOR [Concomitant]
  15. NORVASC [Concomitant]
  16. CATAPRES [Concomitant]
  17. SENOKOT [Concomitant]
  18. PROTONIX [Concomitant]
  19. HUMULIN N [Concomitant]
  20. HUMALOG PLUS [Concomitant]
  21. BUSPAR [Concomitant]
  22. XANAX [Concomitant]
  23. NEXIUM [Concomitant]
  24. DESIMIPRAMINE [Concomitant]
  25. LANTUS [Concomitant]
  26. INTERFERON [Concomitant]
  27. GLUCOPHAGE [Concomitant]
  28. VASOTEC [Concomitant]
  29. AMBIEN [Concomitant]

REACTIONS (29)
  - ACUTE PSYCHOSIS [None]
  - AMNESIA [None]
  - ANXIETY [None]
  - ATTENTION DEFICIT/HYPERACTIVITY DISORDER [None]
  - BLOOD PRESSURE INCREASED [None]
  - BRADYPHRENIA [None]
  - CHILLS [None]
  - COMMINUTED FRACTURE [None]
  - DEATH [None]
  - DIABETES MELLITUS INADEQUATE CONTROL [None]
  - DIABETIC COMPLICATION [None]
  - GASTROINTESTINAL HAEMORRHAGE [None]
  - GLOSSITIS [None]
  - HEPATITIS C [None]
  - HYPERHIDROSIS [None]
  - HYPERLIPIDAEMIA [None]
  - IRON DEFICIENCY ANAEMIA [None]
  - LIMB INJURY [None]
  - MAJOR DEPRESSION [None]
  - NEPHROPATHY [None]
  - OESOPHAGITIS [None]
  - PAIN [None]
  - PANIC DISORDER [None]
  - PNEUMONIA [None]
  - PSYCHOTIC DISORDER [None]
  - RETINOPATHY [None]
  - RHINITIS [None]
  - TYPE 2 DIABETES MELLITUS [None]
  - UPPER RESPIRATORY TRACT INFECTION [None]
